FAERS Safety Report 7494641-5 (Version None)
Quarter: 2011Q2

REPORT INFORMATION
  Report Type: 
  Country: None (occurrence: None)
  Receive Date: 20110520
  Receipt Date: 20110510
  Transmission Date: 20111010
  Serious: Yes (Hospitalization, Other)
  Sender: FDA-Public Use
  Company Number: US-PFIZER INC-2011071600

PATIENT
  Sex: Female

DRUGS (4)
  1. WELLBUTRIN [Concomitant]
     Dosage: 150 UNK, UNK
  2. ATIVAN [Concomitant]
     Dosage: 1 UNK, 2X/DAY
  3. PRISTIQ [Suspect]
     Dosage: 100 UNK, UNK
     Route: 048
     Dates: start: 20100119, end: 20110301
  4. LAMICTAL [Concomitant]
     Dosage: 200 UNK, UNK

REACTIONS (1)
  - HYPONATRAEMIA [None]
